FAERS Safety Report 4592835-X (Version None)
Quarter: 2005Q1

REPORT INFORMATION
  Report Type: 
  Country: None (occurrence: None)
  Receive Date: 20050228
  Receipt Date: 20050223
  Transmission Date: 20050727
  Serious: Yes (Hospitalization)
  Sender: FDA-Public Use
  Company Number: PHNU2005DE01062

PATIENT
  Age: 50 Year
  Sex: Female

DRUGS (2)
  1. SANDOSTATIN [Suspect]
     Indication: PHAEOCHROMOCYTOMA
     Dosage: 150 UG, TID
     Route: 058
     Dates: start: 19980101
  2. PEGASYS [Suspect]
     Dosage: UNKNOWN
     Route: 065
     Dates: start: 20040101

REACTIONS (2)
  - ALOPECIA [None]
  - DROP ATTACKS [None]
